FAERS Safety Report 23341724 (Version 1)
Quarter: 2023Q4

REPORT INFORMATION
  Report Type: Spontaneous
  Country: US (occurrence: US)
  Receive Date: 20231227
  Receipt Date: 20231227
  Transmission Date: 20240110
  Serious: No
  Sender: FDA-Public Use
  Company Number: US-AMGEN-USASP2023229547

PATIENT
  Age: 55 Year
  Sex: Female

DRUGS (1)
  1. PROLIA [Suspect]
     Active Substance: DENOSUMAB
     Indication: Osteoporosis prophylaxis
     Dosage: 60 MILLIGRAM, QMO
     Route: 058
     Dates: start: 2015

REACTIONS (2)
  - Tooth disorder [Unknown]
  - Off label use [Unknown]

NARRATIVE: CASE EVENT DATE: 20150101
